FAERS Safety Report 4758515-2 (Version None)
Quarter: 2005Q3

REPORT INFORMATION
  Report Type: 
  Country: None (occurrence: None)
  Receive Date: 20050830
  Receipt Date: 20050830
  Transmission Date: 20060218
  Serious: Yes (Hospitalization)
  Sender: FDA-Public Use
  Company Number: None

PATIENT
  Sex: Male

DRUGS (1)
  1. LEVOFLOXAVIN [Suspect]
     Indication: PNEUMONIA
     Dosage: 500   PO
     Route: 048
     Dates: start: 20050827, end: 20050829

REACTIONS (1)
  - HYPOGLYCAEMIA [None]
